FAERS Safety Report 15392730 (Version 1)
Quarter: 2018Q3

REPORT INFORMATION
  Report Type: Spontaneous
  Country: FR (occurrence: FR)
  Receive Date: 20180917
  Receipt Date: 20180917
  Transmission Date: 20181010
  Serious: Yes (Hospitalization)
  Sender: FDA-Public Use
  Company Number: FR-PFIZER INC-2018368074

PATIENT
  Age: 19 Year
  Sex: Female

DRUGS (3)
  1. ALCOHOL. [Suspect]
     Active Substance: ALCOHOL
     Indication: ALCOHOL USE
     Dosage: UNK
     Route: 048
  2. COCAINE [Suspect]
     Active Substance: COCAINE
     Indication: DRUG ABUSE
     Dosage: UNK
     Route: 065
  3. ALPRAZOLAM. [Suspect]
     Active Substance: ALPRAZOLAM
     Dosage: UNK (1 TO 5 TABLETS) AS NEEDED
     Route: 048

REACTIONS (4)
  - Victim of chemical submission [Recovered/Resolved]
  - Alcohol poisoning [Recovered/Resolved]
  - Drug abuse [Recovering/Resolving]
  - Victim of sexual abuse [Recovered/Resolved]

NARRATIVE: CASE EVENT DATE: 20171222
